FAERS Safety Report 4579872-6 (Version None)
Quarter: 2005Q1

REPORT INFORMATION
  Report Type: 
  Country: None (occurrence: None)
  Receive Date: 20050210
  Receipt Date: 20050210
  Transmission Date: 20050727
  Serious: No
  Sender: FDA-Public Use
  Company Number: None

PATIENT
  Sex: Male
  Weight: 64.5 kg

DRUGS (10)
  1. CYCLOPHOSPHAMIDE [Suspect]
     Dosage: 1200 MG/M2 IV OVER 15-30 MIN ON DAY 1
     Route: 042
  2. DAUNORUBICIN HCL [Suspect]
     Dosage: 80 MG/M2/DAY X 3 DAYS IV ON DAYS 1,2,3
     Route: 042
  3. VINCRISTINE [Suspect]
     Dosage: 2 MG IVP ON DAYS 1, 8, 15, 22
     Route: 042
  4. DEXAMETHASONE [Suspect]
     Dosage: 5 MG/M2 PO BID ON DAYS 1-7
     Route: 048
  5. L-ASPARGINASE [Suspect]
     Dosage: 6000 U/M2 SC/IM ON DAYS 5, 8, 11, 15, 18, 22
  6. NEUPOGEN [Suspect]
     Dosage: 5 MCG/KG/DAY SC STARTING DAY 4 X 7 DAYS AND CONTINUING UNTIL ANC IS }5000 MCL PRN
     Route: 058
  7. ACYCLOVIR [Suspect]
     Dosage: 800 MG PO QID
     Route: 048
  8. METHOTREXATE [Suspect]
     Dosage: 15 MG + 50 MG HYDROCORTISONE IT ON DAY 1
     Route: 037
  9. CYCLOPHOSPHAMIDE [Suspect]
     Dosage: 1000 MG/M2 IV OVER 15-30 MIN ON DAY 1
     Route: 042
  10. CYTARABINE [Suspect]
     Dosage: 2000 MG/M2 IV OVER 3 HR ON DAYS 1 , 2, AND 3

REACTIONS (1)
  - FEBRILE NEUTROPENIA [None]
